FAERS Safety Report 7751502-1 (Version None)
Quarter: 2011Q3

REPORT INFORMATION
  Report Type: 
  Country: None (occurrence: None)
  Receive Date: 20110914
  Receipt Date: 20110901
  Transmission Date: 20111222
  Serious: Yes (Other)
  Sender: FDA-Public Use
  Company Number: PHHY2011JP78429

PATIENT
  Age: 72 Year
  Sex: Female

DRUGS (4)
  1. NEORAL [Suspect]
     Indication: INTERSTITIAL LUNG DISEASE
     Dosage: 150 MG, UNK
     Route: 048
  2. STEROIDS NOS [Concomitant]
     Indication: INTERSTITIAL LUNG DISEASE
     Dosage: 40 MG, UNK
     Route: 048
  3. STEROIDS NOS [Concomitant]
     Dosage: 10 MG, UNK
     Route: 048
     Dates: start: 20110901
  4. NEORAL [Suspect]
     Dosage: 100 MG, UNK
     Route: 048

REACTIONS (2)
  - PETECHIAE [None]
  - PLATELET COUNT DECREASED [None]
